FAERS Safety Report 9024754 (Version 1)
Quarter: 2012Q4

REPORT INFORMATION
  Report Type: Spontaneous
  Country: US (occurrence: None)
  Receive Date: 20121231
  Receipt Date: 20121231
  Transmission Date: 20130627
  Serious: Yes (Hospitalization, Disabling, Other)
  Sender: FDA-Public Use
  Company Number: ADR-2012-02317

PATIENT
  Sex: Female

DRUGS (1)
  1. BACLOFEN INTRATHECAL [Suspect]

REACTIONS (7)
  - Balance disorder [None]
  - Convulsion [None]
  - Drug withdrawal syndrome [None]
  - Device dislocation [None]
  - Headache [None]
  - Tremor [None]
  - Spinal pain [None]
